FAERS Safety Report 9436468 (Version 3)
Quarter: 2014Q2

REPORT INFORMATION
  Report Type: Report from Study
  Country: GB (occurrence: GB)
  Receive Date: 20130802
  Receipt Date: 20140404
  Transmission Date: 20141212
  Serious: Yes (Death, Hospitalization)
  Sender: FDA-Public Use
  Company Number: GB-ROCHE-1255978

PATIENT
  Age: 70 Year
  Sex: Female

DRUGS (1)
  1. RANIBIZUMAB [Suspect]
     Indication: PRODUCT USED FOR UNKNOWN INDICATION
     Dosage: LAST DOSE PRIOR TO SAE: 06/MAR/2013.
     Route: 050
     Dates: start: 20111220, end: 20130424

REACTIONS (2)
  - Metastatic malignant melanoma [Fatal]
  - Metastasis [Unknown]
